FAERS Safety Report 9565696 (Version 1)
Quarter: 2013Q3

REPORT INFORMATION
  Report Type: Spontaneous
  Country: SK (occurrence: SK)
  Receive Date: 20130930
  Receipt Date: 20130930
  Transmission Date: 20140515
  Serious: Yes (Other)
  Sender: FDA-Public Use
  Company Number: SK-BRISTOL-MYERS SQUIBB COMPANY-19461920

PATIENT
  Age: 63 Year
  Sex: Male

DRUGS (3)
  1. ERBITUX SOLN FOR INF [Suspect]
     Indication: OROPHARYNGEAL CANCER
     Dosage: 2NDCYCLE:700/450MG WEEKLY (1 IN 1WK).?5THCYCLE: 14 DAYS(900 MG,CYCLICAL).?ONGOING
     Route: 042
     Dates: start: 201207
  2. CARBOPLATIN [Suspect]
     Indication: CHEMOTHERAPY
     Dosage: 1DF=6 AUC,(400MG) DAY 1.?4THCYCLE 1350MG,CYCLICAL.?5THCYCLE: 14DAYS 1200 MG,CYCLICAL.
     Dates: start: 20120604, end: 201304
  3. VINORELBINE [Suspect]
     Indication: CHEMOTHERAPY
     Dosage: DL,8.25 MG/M2,L IN 21 D.?NVB 40MG D8 NOT ADMINISTERED 140 MG.
     Dates: start: 20120604, end: 201304

REACTIONS (7)
  - Haemorrhage [Unknown]
  - Lung disorder [Unknown]
  - Anaemia [Recovered/Resolved]
  - Fistula [Unknown]
  - Rash [Recovering/Resolving]
  - Neutropenia [Unknown]
  - Dry skin [Unknown]
